FAERS Safety Report 8993375 (Version 1)
Quarter: 2013Q1

REPORT INFORMATION
  Report Type: Spontaneous
  Country: US (occurrence: US)
  Receive Date: 20130102
  Receipt Date: 20130102
  Transmission Date: 20140127
  Serious: Yes (Other)
  Sender: FDA-Public Use
  Company Number: CHPA2012US025630

PATIENT
  Age: 56 Year
  Sex: Female

DRUGS (1)
  1. EXCEDRIN MIGRAINE [Suspect]
     Indication: MIGRAINE
     Dosage: 1/2 TO 1 PILL, PRN
     Route: 048
     Dates: start: 2006, end: 2012

REACTIONS (4)
  - Cystitis [Recovered/Resolved]
  - Headache [Unknown]
  - Vomiting [Unknown]
  - Underdose [Unknown]
